FAERS Safety Report 16653616 (Version 3)
Quarter: 2020Q3

REPORT INFORMATION
  Report Type: Spontaneous
  Country: US (occurrence: US)
  Receive Date: 20190731
  Receipt Date: 20200828
  Transmission Date: 20201102
  Serious: Yes (Other)
  Sender: FDA-Public Use
  Company Number: US-GILEAD-2019-0420327

PATIENT
  Age: 57 Year
  Sex: Female
  Weight: 70.3 kg

DRUGS (56)
  1. OXYCODONE AND ACETAMINOPHEN [Concomitant]
     Active Substance: ACETAMINOPHEN\OXYCODONE HYDROCHLORIDE
  2. ONDANSETRON [Concomitant]
     Active Substance: ONDANSETRON
  3. DICYCLOMINE HCL [Concomitant]
     Active Substance: DICYCLOMINE HYDROCHLORIDE
  4. MUPIROCIN. [Concomitant]
     Active Substance: MUPIROCIN
  5. LORATADINE. [Concomitant]
     Active Substance: LORATADINE
  6. AMOXICILLIN. [Concomitant]
     Active Substance: AMOXICILLIN
  7. COMBIVIR [Concomitant]
     Active Substance: LAMIVUDINE\ZIDOVUDINE
  8. SYMBICORT [Concomitant]
     Active Substance: BUDESONIDE\FORMOTEROL FUMARATE DIHYDRATE
  9. BIKTARVY [Concomitant]
     Active Substance: BICTEGRAVIR SODIUM\EMTRICITABINE\TENOFOVIR ALAFENAMIDE FUMARATE
  10. METHYLPRED [Concomitant]
     Active Substance: METHYLPREDNISOLONE
  11. OMEPRAZOLE. [Concomitant]
     Active Substance: OMEPRAZOLE
  12. TAMIFLU [Concomitant]
     Active Substance: OSELTAMIVIR PHOSPHATE
  13. AMOXICILLIN AND CLAVULA. POTASSIUM [AMOXICILLIN;CLAVULANATE POTASSIUM] [Concomitant]
     Active Substance: AMOXICILLIN\CLAVULANATE POTASSIUM
  14. LOVENOX [Concomitant]
     Active Substance: ENOXAPARIN SODIUM
  15. BACTRIM [Concomitant]
     Active Substance: SULFAMETHOXAZOLE\TRIMETHOPRIM
  16. PREVPAC [Concomitant]
     Active Substance: AMOXICILLIN\CLARITHROMYCIN\LANSOPRAZOLE
  17. NORVIR [Concomitant]
     Active Substance: RITONAVIR
  18. SYMBICORT [Concomitant]
     Active Substance: BUDESONIDE\FORMOTEROL FUMARATE DIHYDRATE
  19. CYCLOBENZAPRIN [Concomitant]
     Active Substance: CYCLOBENZAPRINE
  20. ATRIPLA [Suspect]
     Active Substance: EFAVIRENZ\EMTRICITABINE\TENOFOVIR DISOPROXIL FUMARATE
     Indication: HIV INFECTION
     Dosage: UNK
     Route: 048
     Dates: start: 201209, end: 201907
  21. IBUPROFEN. [Concomitant]
     Active Substance: IBUPROFEN
  22. REYATAZ [Concomitant]
     Active Substance: ATAZANAVIR SULFATE
  23. CRESTOR [Concomitant]
     Active Substance: ROSUVASTATIN CALCIUM
  24. VIREAD [Suspect]
     Active Substance: TENOFOVIR DISOPROXIL FUMARATE
     Indication: HIV INFECTION
     Dosage: UNK
     Route: 065
     Dates: start: 200110, end: 200512
  25. FLUARIX NOS [Concomitant]
     Active Substance: INFLUENZA VIRUS VACCINE
  26. OXYCODONE [Concomitant]
     Active Substance: OXYCODONE
  27. ATORVASTATIN [Concomitant]
     Active Substance: ATORVASTATIN
  28. GABAPENTIN. [Concomitant]
     Active Substance: GABAPENTIN
  29. PHENADOZ [Concomitant]
     Active Substance: PROMETHAZINE HYDROCHLORIDE
  30. NYSTATIN. [Concomitant]
     Active Substance: NYSTATIN
  31. AZITHROMYCIN ANHYDROUS. [Concomitant]
     Active Substance: AZITHROMYCIN ANHYDROUS
  32. QVAR [Concomitant]
     Active Substance: BECLOMETHASONE DIPROPIONATE
  33. ZIAGEN [Concomitant]
     Active Substance: ABACAVIR SULFATE
  34. TRAMADOL. [Concomitant]
     Active Substance: TRAMADOL
  35. PREDNISONE. [Concomitant]
     Active Substance: PREDNISONE
  36. KETOROLAC [Concomitant]
     Active Substance: KETOROLAC TROMETHAMINE
  37. SULFAMETHOXAZOLE;TRIMETHOPRIM [Concomitant]
     Active Substance: SULFAMETHOXAZOLE\TRIMETHOPRIM
  38. VENTOLIN HFA [Concomitant]
     Active Substance: ALBUTEROL SULFATE
  39. PRAVASTATIN. [Concomitant]
     Active Substance: PRAVASTATIN
  40. SUMATRIPTAN. [Concomitant]
     Active Substance: SUMATRIPTAN
  41. TRAMADOL + ACETAMINOFEN [Concomitant]
     Active Substance: ACETAMINOPHEN\TRAMADOL
  42. TRUVADA [Suspect]
     Active Substance: EMTRICITABINE\TENOFOVIR DISOPROXIL FUMARATE
     Indication: HIV INFECTION
     Dosage: UNK
     Route: 048
     Dates: start: 200601, end: 201208
  43. HYDROCODONE/ACETAMINOPHEN [Concomitant]
     Active Substance: ACETAMINOPHEN\HYDROCODONE
  44. XARELTO [Concomitant]
     Active Substance: RIVAROXABAN
  45. BENZONATATE. [Concomitant]
     Active Substance: BENZONATATE
  46. METHOCARBAMOL. [Concomitant]
     Active Substance: METHOCARBAMOL
  47. CITALOPRAM [Concomitant]
     Active Substance: CITALOPRAM HYDROBROMIDE
  48. WARFARIN [Concomitant]
     Active Substance: WARFARIN
  49. ACYCLOVIR [ACICLOVIR] [Concomitant]
     Active Substance: ACYCLOVIR
  50. TERBINAFINE. [Concomitant]
     Active Substance: TERBINAFINE
  51. TIZANIDINE. [Concomitant]
     Active Substance: TIZANIDINE
  52. TRAZODONE [Concomitant]
     Active Substance: TRAZODONE HYDROCHLORIDE
  53. BUTORPHANOL [Concomitant]
     Active Substance: BUTORPHANOL
  54. PHENAZOPYRIDIN HCL [Concomitant]
  55. ASPIRIN (E.C.) [Concomitant]
     Active Substance: ASPIRIN
  56. XARELTO [Concomitant]
     Active Substance: RIVAROXABAN

REACTIONS (7)
  - Osteonecrosis [Not Recovered/Not Resolved]
  - Bone density decreased [Not Recovered/Not Resolved]
  - Anhedonia [Unknown]
  - Pain [Unknown]
  - Economic problem [Unknown]
  - Emotional distress [Unknown]
  - Anxiety [Unknown]

NARRATIVE: CASE EVENT DATE: 201711
